FAERS Safety Report 21841763 (Version 1)
Quarter: 2023Q1

REPORT INFORMATION
  Report Type: Spontaneous
  Country: ES (occurrence: ES)
  Receive Date: 20230110
  Receipt Date: 20230110
  Transmission Date: 20230418
  Serious: Yes (Other)
  Sender: FDA-Public Use
  Company Number: None

PATIENT
  Age: 89 Year
  Sex: Male

DRUGS (7)
  1. FUROSEMIDE [Suspect]
     Active Substance: FUROSEMIDE
     Indication: Cardiac failure congestive
     Dates: start: 20210302, end: 20210325
  2. SINTROM [Concomitant]
     Active Substance: ACENOCOUMAROL
     Dosage: STRENGTH: 4 MG TABLETS, 20 TABLETS, TOTAL
     Dates: start: 20131022
  3. GLYCOPYRROLATE\INDACATEROL MALEATE [Concomitant]
     Active Substance: GLYCOPYRROLATE\INDACATEROL MALEATE
     Dosage: STRENGTH: 85 MICROGRAMS/43 MICROGRAMS POWDER FOR INHALATION (HARD CAPSULE)
     Dates: start: 20161102
  4. ANGIODROX [Concomitant]
     Dosage: STRENGTH:  90 MG PROLONGED RELEASE HARD CAPSULES, 60 CAPSULES
     Dates: start: 20210203
  5. SEREVENT DISKUS [Concomitant]
     Active Substance: SALMETEROL XINAFOATE
     Dosage: STRENGTH: 25 MICROGRAMS/INHALATION, SUSPENSION FOR INHALATION IN PRESSURIZED?CONTAINER
     Dates: start: 20120403
  6. ATORVASTATIN, ACETYLSALICYLIC ACID, RAMIPRIL [Concomitant]
     Dosage: STRENGTH: 100 MG/40 MG/5 MG HARD CAPSULES 28 CAPSULES
     Dates: start: 20210211
  7. DUTASTERIDE [Concomitant]
     Active Substance: DUTASTERIDE
     Dosage: STRENGTH: 0.5 MG SOFT CAPSULES, 30 CAPSULES
     Dates: start: 20131018

REACTIONS (2)
  - Ototoxicity [Unknown]
  - Deafness [Unknown]

NARRATIVE: CASE EVENT DATE: 20210301
